FAERS Safety Report 4838504-X (Version None)
Quarter: 2005Q4

REPORT INFORMATION
  Report Type: 
  Country: None (occurrence: None)
  Receive Date: 20051123
  Receipt Date: 20051024
  Transmission Date: 20060501
  Serious: Yes (Other)
  Sender: FDA-Public Use
  Company Number: 8012951

PATIENT
  Age: 16 Year
  Sex: Male
  Weight: 62 kg

DRUGS (4)
  1. KEPPRA [Suspect]
     Indication: PARTIAL SEIZURES
     Dosage: 1500 MG 2/D PO
     Route: 048
     Dates: start: 20020101
  2. KEPPRA [Suspect]
     Indication: PARTIAL SEIZURES
     Dosage: 1500 MG 3/D PO
     Route: 048
     Dates: start: 20051022, end: 20051022
  3. LAMICTAL [Suspect]
     Indication: PARTIAL SEIZURES
     Dosage: 125 MG 2/D PO
     Route: 048
     Dates: start: 20050501
  4. LAMICTAL [Suspect]
     Indication: PARTIAL SEIZURES
     Dosage: 125 MG 3/D PO
     Route: 048
     Dates: start: 20051022, end: 20051022

REACTIONS (3)
  - DISTURBANCE IN ATTENTION [None]
  - FATIGUE [None]
  - INCORRECT DOSE ADMINISTERED [None]
